FAERS Safety Report 5657292-0 (Version None)
Quarter: 2008Q1

REPORT INFORMATION
  Report Type: 
  Country: None (occurrence: None)
  Receive Date: 20080310
  Receipt Date: 20080229
  Transmission Date: 20080703
  Serious: Yes (Other)
  Sender: FDA-Public Use
  Company Number: US-WYE-H02903808

PATIENT
  Sex: Female
  Weight: 49.03 kg

DRUGS (1)
  1. PROTONIX [Suspect]
     Indication: GASTROOESOPHAGEAL REFLUX DISEASE
     Route: 048
     Dates: start: 20060901, end: 20070901

REACTIONS (3)
  - CHEST PAIN [None]
  - DRUG EFFECT DECREASED [None]
  - IMPAIRED GASTRIC EMPTYING [None]
